FAERS Safety Report 9345216 (Version 1)
Quarter: 2013Q2

REPORT INFORMATION
  Report Type: Spontaneous
  Country: US (occurrence: US)
  Receive Date: 20130612
  Receipt Date: 20130612
  Transmission Date: 20140414
  Serious: Yes (Hospitalization)
  Sender: FDA-Public Use
  Company Number: US-GILEAD-2013-0076927

PATIENT
  Sex: Female

DRUGS (2)
  1. LETAIRIS [Suspect]
     Indication: PRODUCT USED FOR UNKNOWN INDICATION
     Dosage: 10 MG, QD
     Dates: start: 20100415
  2. ADCIRCA [Concomitant]

REACTIONS (4)
  - Epistaxis [Unknown]
  - Weight increased [Unknown]
  - Arthralgia [Unknown]
  - Nasopharyngitis [Unknown]
